FAERS Safety Report 4536672-0 (Version None)
Quarter: 2004Q4

REPORT INFORMATION
  Report Type: 
  Country: None (occurrence: None)
  Receive Date: 20041222
  Receipt Date: 20041222
  Transmission Date: 20050328
  Serious: Yes (Hospitalization)
  Sender: FDA-Public Use
  Company Number: None

PATIENT
  Sex: Male
  Weight: 81.2 kg

DRUGS (6)
  1. GLEEVEC [Suspect]
     Indication: PANCREATIC CARCINOMA
     Dosage: 400MG/DAY  PO
     Route: 048
     Dates: start: 20041210, end: 20041216
  2. GEMCITABINE 700MG/M2 [Suspect]
     Indication: PANCREATIC CARCINOMA
     Dosage: 700MG/M2 IV
     Route: 042
     Dates: start: 20041210
  3. MOTRIN [Concomitant]
  4. COMPAZINE [Concomitant]
  5. PREDNISONE [Concomitant]
  6. AUGMENTIN '200' [Concomitant]

REACTIONS (7)
  - ANAEMIA [None]
  - ARTHRALGIA [None]
  - FATIGUE [None]
  - FEELING ABNORMAL [None]
  - GOUT [None]
  - NAUSEA [None]
  - VOMITING [None]
